FAERS Safety Report 8185536-2 (Version None)
Quarter: 2012Q1

REPORT INFORMATION
  Report Type: 
  Country: None (occurrence: None)
  Receive Date: 20120305
  Receipt Date: 20120223
  Transmission Date: 20120608
  Serious: Yes (Other)
  Sender: FDA-Public Use
  Company Number: US-ELI_LILLY_AND_COMPANY-US201202007279

PATIENT
  Sex: Female

DRUGS (5)
  1. PREDNISONE TAB [Concomitant]
     Dosage: UNK
  2. FLAGYL [Concomitant]
     Dosage: UNK UNK, BID
  3. HUMULIN R [Suspect]
     Dosage: UNK
     Dates: start: 20110601
  4. CEFTIN [Concomitant]
     Dosage: UNK UNK, BID
  5. HUMULIN N [Suspect]
     Dosage: UNK
     Dates: start: 20120101

REACTIONS (4)
  - PSEUDOMONAS INFECTION [None]
  - PYREXIA [None]
  - LUNG INFECTION [None]
  - CHRONIC OBSTRUCTIVE PULMONARY DISEASE [None]
